FAERS Safety Report 4462260-0 (Version None)
Quarter: 2004Q3

REPORT INFORMATION
  Report Type: 
  Country: None (occurrence: None)
  Receive Date: 20040929
  Receipt Date: 20040810
  Transmission Date: 20050211
  Serious: Yes (Hospitalization)
  Sender: FDA-Public Use
  Company Number: FR-GLAXOSMITHKLINE-B0342144A

PATIENT
  Age: 13 Year
  Sex: Male
  Weight: 60 kg

DRUGS (18)
  1. AZANTAC [Suspect]
     Indication: PROPHYLAXIS
     Route: 042
     Dates: start: 20040704
  2. CLAMOXYL [Suspect]
     Route: 065
     Dates: start: 20040704, end: 20040708
  3. TRACRIUM [Suspect]
     Route: 042
     Dates: start: 20040704, end: 20040707
  4. NIMBEX [Suspect]
     Route: 042
     Dates: start: 20040707, end: 20040730
  5. FRAXIPARINE [Suspect]
     Indication: THROMBOSIS PROPHYLAXIS
     Route: 058
     Dates: start: 20040704
  6. SUFENTA [Suspect]
     Route: 065
     Dates: start: 20040704
  7. IMMUNOGLOBULIN ANTITETANUS [Suspect]
     Dosage: 1UNIT PER DAY
     Route: 030
     Dates: start: 20040702, end: 20040702
  8. ANTITETANIC VACCINE [Suspect]
     Route: 058
     Dates: start: 20040702, end: 20040702
  9. VALIUM [Suspect]
     Route: 042
     Dates: start: 20040703
  10. SURGAM [Suspect]
     Route: 048
     Dates: start: 20040702, end: 20040703
  11. HYPNOVEL [Suspect]
     Route: 042
     Dates: start: 20040704, end: 20040809
  12. DIPRIVAN [Suspect]
     Indication: INTUBATION
     Route: 065
     Dates: start: 20040704
  13. MYOLASTAN [Suspect]
     Dates: start: 20040701
  14. NUBAIN [Suspect]
     Dates: start: 20040703, end: 20040704
  15. AUGMENTIN '125' [Concomitant]
     Route: 065
     Dates: start: 20040708, end: 20040803
  16. AMIKACIN [Concomitant]
     Indication: LUNG INFECTION
     Route: 065
     Dates: start: 20040717, end: 20040718
  17. VANCOMYCIN [Concomitant]
     Route: 065
     Dates: start: 20040805
  18. ROCEPHIN [Concomitant]
     Route: 065
     Dates: start: 20040805

REACTIONS (8)
  - EOSINOPHILIA [None]
  - GLUCOSE TOLERANCE IMPAIRED [None]
  - HAEMATURIA [None]
  - HYPERTENSION [None]
  - NEPHRITIS INTERSTITIAL [None]
  - OLIGURIA [None]
  - RASH GENERALISED [None]
  - VENA CAVA THROMBOSIS [None]
